FAERS Safety Report 22359262 (Version 1)
Quarter: 2023Q2

REPORT INFORMATION
  Report Type: Spontaneous
  Country: MX (occurrence: None)
  Receive Date: 20230524
  Receipt Date: 20230524
  Transmission Date: 20230721
  Serious: Yes (Other)
  Sender: FDA-Public Use
  Company Number: MX-ROCHE-3351947

PATIENT
  Sex: Male
  Weight: 72 kg

DRUGS (1)
  1. OCREVUS [Suspect]
     Active Substance: OCRELIZUMAB
     Indication: Multiple sclerosis
     Dosage: DOSE AND FREQUENCY WERE NOT REPORTED
     Route: 065
     Dates: start: 202208

REACTIONS (8)
  - Hypertension [Unknown]
  - Asthma [Unknown]
  - Muscular weakness [Unknown]
  - Dysaesthesia [Unknown]
  - Paraesthesia [Unknown]
  - Dysmetria [Unknown]
  - Dysdiadochokinesis [Unknown]
  - Gait spastic [Unknown]
